FAERS Safety Report 12559247 (Version 1)
Quarter: 2016Q3

REPORT INFORMATION
  Report Type: Spontaneous
  Country: US (occurrence: US)
  Receive Date: 20160715
  Receipt Date: 20160715
  Transmission Date: 20161109
  Serious: Yes (Other)
  Sender: FDA-Public Use
  Company Number: US-ZYDUS-011562

PATIENT
  Age: 16 Year
  Sex: Female

DRUGS (1)
  1. DOXYCYCLINE. [Suspect]
     Active Substance: DOXYCYCLINE
     Indication: ACNE
     Dosage: ORAL DOXYCYCLINE 150MG FOR ACNE VULGARIS FOR 3 MONTHS.
     Route: 048

REACTIONS (9)
  - Hyperthyroidism [Recovered/Resolved]
  - Fatigue [Recovered/Resolved]
  - Asthenia [Recovered/Resolved]
  - Thyroxine free increased [Recovered/Resolved]
  - Eye swelling [Recovered/Resolved]
  - Headache [Recovered/Resolved]
  - Impaired work ability [Recovered/Resolved]
  - Diplopia [Recovered/Resolved]
  - Blood thyroid stimulating hormone decreased [Recovered/Resolved]
